FAERS Safety Report 5069802-5 (Version None)
Quarter: 2006Q3

REPORT INFORMATION
  Report Type: 
  Country: None (occurrence: None)
  Receive Date: 20060731
  Receipt Date: 20060712
  Transmission Date: 20061208
  Serious: Yes (Other)
  Sender: FDA-Public Use
  Company Number: 8017879

PATIENT
  Sex: Male

DRUGS (2)
  1. KEPPRA [Suspect]
  2. UNSPECIFIED MONOCLONAL ANTIBODY [Concomitant]

REACTIONS (1)
  - THROMBOCYTOPENIA [None]
